FAERS Safety Report 6972911-4 (Version None)
Quarter: 2010Q3

REPORT INFORMATION
  Report Type: 
  Country: None (occurrence: None)
  Receive Date: 20100909
  Receipt Date: 20100706
  Transmission Date: 20110219
  Serious: No
  Sender: FDA-Public Use
  Company Number: US-KINGPHARMUSA00001-K201000844

PATIENT
  Age: 55 Year
  Sex: Male
  Weight: 96.145 kg

DRUGS (4)
  1. EMBEDA [Suspect]
     Dosage: 50 MG, BID
     Dates: start: 20100604, end: 20100607
  2. XANAX [Concomitant]
     Indication: INSOMNIA
     Dosage: 1 MG, BID
  3. VITAMIN D [Concomitant]
     Dosage: UNK
     Dates: start: 20100601
  4. CHROMIUM PICOLINATE [Concomitant]
     Indication: WEIGHT DECREASED
     Dosage: UNK

REACTIONS (1)
  - DRUG INEFFECTIVE [None]
